APPROVED DRUG PRODUCT: AMINOSYN II 3.5% W/ ELECTROLYTES IN DEXTROSE 25% W/ CALCIUM IN PLASTIC CONTAINER
Active Ingredient: AMINO ACIDS; CALCIUM CHLORIDE; DEXTROSE; MAGNESIUM CHLORIDE; POTASSIUM CHLORIDE; POTASSIUM PHOSPHATE, DIBASIC; SODIUM CHLORIDE
Strength: 3.5%;36.8MG/100ML;25GM/100ML;51MG/100ML;22.4MG/100ML;261MG/100ML;205MG/100ML
Dosage Form/Route: INJECTABLE;INJECTION
Application: N019683 | Product #001
Applicant: HOSPIRA INC
Approved: Nov 7, 1988 | RLD: No | RS: No | Type: DISCN